FAERS Safety Report 5736872-8 (Version None)
Quarter: 2008Q2

REPORT INFORMATION
  Report Type: 
  Country: None (occurrence: None)
  Receive Date: 20080508
  Receipt Date: 20070820
  Transmission Date: 20081010
  Serious: Yes (Life-Threatening, Hospitalization)
  Sender: FDA-Public Use
  Company Number: 80756

PATIENT
  Age: 85 Year
  Sex: Male

DRUGS (6)
  1. IBUPROFEN [Suspect]
     Dosage: 400MG/3 /1DAYS/ORAL
     Route: 048
     Dates: start: 20070620, end: 20070725
  2. WARFARIN SODIUM [Suspect]
     Indication: ATRIAL FIBRILLATION
  3. BECOTIDE [Concomitant]
  4. BIMATOPROST [Concomitant]
  5. COMBIVENT [Concomitant]
  6. MONTELUKAST SODIUM [Concomitant]

REACTIONS (2)
  - GASTROINTESTINAL HAEMORRHAGE [None]
  - GASTROINTESTINAL ULCER PERFORATION [None]
